FAERS Safety Report 24020061 (Version 7)
Quarter: 2024Q4

REPORT INFORMATION
  Report Type: Spontaneous
  Country: CA (occurrence: CA)
  Receive Date: 20240627
  Receipt Date: 20241205
  Transmission Date: 20250114
  Serious: Yes (Other)
  Sender: BIOMARIN
  Company Number: CA-SA-SAC20240624000203

PATIENT

DRUGS (4)
  1. LARONIDASE [Suspect]
     Active Substance: LARONIDASE
     Indication: Mucopolysaccharidosis I
     Dosage: 17.4 MG, QW
     Route: 041
     Dates: start: 20081129
  2. ACETAMINOPHEN [Concomitant]
     Active Substance: ACETAMINOPHEN
     Indication: Premedication
     Dosage: 325 MG
  3. LASIX [Concomitant]
     Active Substance: FUROSEMIDE
     Indication: Product used for unknown indication
     Dosage: 20MG, BID
  4. Reactine [Concomitant]
     Indication: Premedication
     Dosage: 10 MG

REACTIONS (13)
  - Acute pulmonary oedema [Unknown]
  - Anxiety [Unknown]
  - Pallor [Recovered/Resolved]
  - Dyspnoea [Unknown]
  - Heart rate increased [Unknown]
  - Cough [Not Recovered/Not Resolved]
  - Fatigue [Unknown]
  - Oxygen saturation decreased [Recovering/Resolving]
  - Dyspnoea [Recovered/Resolved]
  - Oxygen saturation decreased [Recovering/Resolving]
  - Respiratory rate increased [Recovering/Resolving]
  - Blood pressure decreased [Recovering/Resolving]
  - Heart rate increased [Recovering/Resolving]

NARRATIVE: CASE EVENT DATE: 20240619
